FAERS Safety Report 14361414 (Version 1)
Quarter: 2018Q1

REPORT INFORMATION
  Report Type: Spontaneous
  Country: RU (occurrence: RU)
  Receive Date: 20180108
  Receipt Date: 20180108
  Transmission Date: 20180509
  Serious: Yes (Hospitalization)
  Sender: FDA-Public Use
  Company Number: RU-ROCHE-2047553

PATIENT
  Age: 60 Year
  Sex: Female

DRUGS (3)
  1. LORISTA [Suspect]
     Active Substance: LOSARTAN POTASSIUM
     Indication: COMPLETED SUICIDE
     Dosage: 30 DOSES
     Route: 048
     Dates: start: 20171112, end: 20171112
  2. TAMIFLU [Suspect]
     Active Substance: OSELTAMIVIR PHOSPHATE
     Indication: COMPLETED SUICIDE
     Route: 048
     Dates: start: 20171112, end: 20171112
  3. OMEPRAZOLE. [Suspect]
     Active Substance: OMEPRAZOLE
     Indication: COMPLETED SUICIDE
     Dosage: 300-600MG
     Route: 048
     Dates: start: 20171112, end: 20171112

REACTIONS (2)
  - Apathy [Recovering/Resolving]
  - Overdose [Unknown]

NARRATIVE: CASE EVENT DATE: 20171113
